FAERS Safety Report 5211884-1 (Version None)
Quarter: 2007Q1

REPORT INFORMATION
  Report Type: 
  Country: None (occurrence: None)
  Receive Date: 20070118
  Receipt Date: 20070109
  Transmission Date: 20070707
  Serious: Yes (Other)
  Sender: FDA-Public Use
  Company Number: US-BRISTOL-MYERS SQUIBB COMPANY-13636204

PATIENT
  Sex: Female

DRUGS (1)
  1. ABILIFY [Suspect]
     Indication: PSYCHOTIC DISORDER
     Dosage: STARTED MEDICATION ABOUT A YEAR AGO
     Route: 048
     Dates: end: 20070105

REACTIONS (3)
  - ANAEMIA [None]
  - LEUKAEMIA [None]
  - THROMBOCYTOPENIA [None]
